FAERS Safety Report 6595066-7 (Version None)
Quarter: 2010Q1

REPORT INFORMATION
  Report Type: 
  Country: None (occurrence: None)
  Receive Date: 20100222
  Receipt Date: 20100217
  Transmission Date: 20100710
  Serious: Yes (Hospitalization)
  Sender: FDA-Public Use
  Company Number: JP-GENENTECH-298284

PATIENT
  Sex: Male

DRUGS (3)
  1. RITUXAN [Suspect]
     Indication: MANTLE CELL LYMPHOMA
     Dosage: UNK
     Route: 042
  2. ZEVALIN [Suspect]
     Indication: MANTLE CELL LYMPHOMA
     Dosage: 11.1 UNK, UNK
     Route: 042
     Dates: start: 20091216
  3. ZEVALIN [Suspect]
     Indication: MANTLE CELL LYMPHOMA
     Route: 042

REACTIONS (1)
  - VERTIGO POSITIONAL [None]
